FAERS Safety Report 18280994 (Version 2)
Quarter: 2020Q3

REPORT INFORMATION
  Report Type: Spontaneous
  Country: GB (occurrence: GB)
  Receive Date: 20200918
  Receipt Date: 20200921
  Transmission Date: 20201103
  Serious: Yes (Other)
  Sender: FDA-Public Use
  Company Number: GB-CIPLA LTD.-2020GB06574

PATIENT

DRUGS (2)
  1. ESOMEPRAZOLE. [Suspect]
     Active Substance: ESOMEPRAZOLE MAGNESIUM
     Indication: GASTROOESOPHAGEAL REFLUX DISEASE
     Dosage: 20 MILLIGRAM, QD, INITIALLY REDUCING THE DOSE TO 20 MG QD, THEN INCREASED BACK TO 20MG BID
     Route: 048
     Dates: start: 2019
  2. HYPERICUM PERFORATUM [Concomitant]
     Active Substance: HYPERICUM PERFORATUM WHOLE
     Indication: PRODUCT USED FOR UNKNOWN INDICATION
     Dosage: UNK
     Route: 065

REACTIONS (4)
  - Suicidal ideation [Unknown]
  - Anxiety [Unknown]
  - Depression [Unknown]
  - Affective disorder [Unknown]

NARRATIVE: CASE EVENT DATE: 20200804
